FAERS Safety Report 4944890-2 (Version None)
Quarter: 2006Q1

REPORT INFORMATION
  Report Type: 
  Country: None (occurrence: None)
  Receive Date: 20060315
  Receipt Date: 20051209
  Transmission Date: 20060701
  Serious: Yes (Disabling)
  Sender: FDA-Public Use
  Company Number: ES-MERCK-0512ESP00008

PATIENT
  Age: 78 Year
  Sex: Female

DRUGS (5)
  1. FOSAMAX [Suspect]
     Indication: OSTEOPOROSIS
     Route: 048
     Dates: start: 20010101, end: 20051201
  2. COZAAR [Concomitant]
     Indication: CARDIAC FAILURE
     Route: 048
     Dates: start: 19980101
  3. ASPIRIN [Concomitant]
     Indication: THROMBOSIS PROPHYLAXIS
     Route: 048
     Dates: start: 19980101
  4. TRAVOPROST [Concomitant]
     Indication: GLAUCOMA
     Route: 047
     Dates: start: 20040101
  5. BRINZOLAMIDE [Concomitant]
     Indication: GLAUCOMA
     Route: 047
     Dates: start: 20040101

REACTIONS (3)
  - FOOT FRACTURE [None]
  - GLAUCOMA [None]
  - TENDONITIS [None]
